FAERS Safety Report 4761253-3 (Version None)
Quarter: 2005Q3

REPORT INFORMATION
  Report Type: 
  Country: None (occurrence: None)
  Receive Date: 20050901
  Receipt Date: 20050822
  Transmission Date: 20060218
  Serious: Yes (Death, Disabling)
  Sender: FDA-Public Use
  Company Number: 2005JP001534

PATIENT
  Age: 88 Year
  Sex: Male

DRUGS (8)
  1. FUNGUARD (MICAFUNGIN) INJECTION [Suspect]
     Indication: PNEUMONIA
     Dosage: 150.00 MG, UID/QD, IV DRIP
     Route: 041
     Dates: start: 20050715, end: 20050727
  2. ISCOTIN (ISONIAZID) TABLET [Suspect]
     Indication: PULMONARY TUBERCULOSIS
     Dosage: 300.00 MG, UID/QD, ORAL
     Route: 048
     Dates: start: 20050401, end: 20050727
  3. RIMACTANE [Suspect]
     Indication: PULMONARY TUBERCULOSIS
     Dosage: 450.00 MG, UID/QD, ORAL
     Route: 048
     Dates: start: 20050318, end: 20050727
  4. ETAMBUTOL (ETHAMBUTOL) TABLET [Concomitant]
  5. PYRIDOXAL PHOSPHATE (PYRIDOXAL PHOSPHATE) TABLET [Concomitant]
  6. PREDNISOLONE [Concomitant]
  7. LUPRAC (TORASEMIDE) TABLET [Concomitant]
  8. LANIRAPID (METILDIGOXIN) TABLET [Concomitant]

REACTIONS (10)
  - ALANINE AMINOTRANSFERASE INCREASED [None]
  - ASPARTATE AMINOTRANSFERASE INCREASED [None]
  - BLOOD BILIRUBIN INCREASED [None]
  - BLOOD LACTATE DEHYDROGENASE INCREASED [None]
  - BLOOD UREA INCREASED [None]
  - DECREASED APPETITE [None]
  - LIVER DISORDER [None]
  - MALAISE [None]
  - PNEUMONIA BACTERIAL [None]
  - PROTHROMBIN TIME PROLONGED [None]
